FAERS Safety Report 6803157-8 (Version None)
Quarter: 2010Q2

REPORT INFORMATION
  Report Type: 
  Country: None (occurrence: None)
  Receive Date: 20100628
  Receipt Date: 20100620
  Transmission Date: 20101027
  Serious: Yes (Hospitalization)
  Sender: FDA-Public Use
  Company Number: A0867032A

PATIENT
  Sex: Male

DRUGS (2)
  1. AMOXAL [Suspect]
     Indication: ENDODONTIC PROCEDURE
     Dosage: 1500MG PER DAY
     Route: 048
     Dates: start: 20100608
  2. MOTRIN [Suspect]

REACTIONS (1)
  - ABDOMINAL PAIN UPPER [None]
